FAERS Safety Report 23353613 (Version 1)
Quarter: 2024Q1

REPORT INFORMATION
  Report Type: Report from Study
  Country: FR (occurrence: FR)
  Receive Date: 20240101
  Receipt Date: 20240101
  Transmission Date: 20240410
  Serious: Yes (Other)
  Sender: FDA-Public Use
  Company Number: FR-ABBVIE-5563745

PATIENT
  Age: 65 Year
  Sex: Male

DRUGS (4)
  1. CARBIDOPA\LEVODOPA [Suspect]
     Active Substance: CARBIDOPA\LEVODOPA
     Indication: Parkinson^s disease
     Route: 050
     Dates: start: 20190723
  2. CARBIDOPA\LEVODOPA [Suspect]
     Active Substance: CARBIDOPA\LEVODOPA
  3. COVID-19 vaccine [Concomitant]
     Indication: COVID-19 immunisation
     Route: 030
     Dates: start: 202312, end: 202312
  4. INFLUENZA VIRUS VACCINE [Concomitant]
     Active Substance: INFLUENZA VIRUS VACCINE
     Indication: Product used for unknown indication
     Dates: start: 202312, end: 202312

REACTIONS (4)
  - Discomfort [Unknown]
  - Subdural haematoma [Unknown]
  - Bradykinesia [Unknown]
  - Hypotension [Unknown]
